FAERS Safety Report 8587468 (Version 4)
Quarter: 2015Q4

REPORT INFORMATION
  Report Type: Spontaneous
  Country: US (occurrence: US)
  Receive Date: 20120531
  Receipt Date: 20151124
  Transmission Date: 20160305
  Serious: Yes (Hospitalization, Other)
  Sender: FDA-Public Use
  Company Number: US-BAYER-2012-052643

PATIENT
  Age: 37 Year
  Sex: Female
  Weight: 56.69 kg

DRUGS (13)
  1. OCELLA [Suspect]
     Active Substance: DROSPIRENONE\ETHINYL ESTRADIOL
     Indication: CONTRACEPTION
     Dosage: UNK
     Dates: start: 20060306, end: 20100326
  2. ALLEGRA [Concomitant]
     Active Substance: FEXOFENADINE HYDROCHLORIDE
  3. PHENTERMINE. [Concomitant]
     Active Substance: PHENTERMINE
     Indication: WEIGHT DECREASED
  4. CYMBALTA [Concomitant]
     Active Substance: DULOXETINE HYDROCHLORIDE
     Dosage: 60 MG, UNK
     Route: 048
     Dates: start: 20091201, end: 20100223
  5. HYDROCODONE [Concomitant]
     Active Substance: HYDROCODONE
  6. CALCIUM [Concomitant]
     Active Substance: CALCIUM
  7. YASMIN [Suspect]
     Active Substance: DROSPIRENONE\ETHINYL ESTRADIOL
  8. KLONOPIN [Concomitant]
     Active Substance: CLONAZEPAM
  9. LOTENSIN HCT [Concomitant]
     Active Substance: BENAZEPRIL HYDROCHLORIDE\HYDROCHLOROTHIAZIDE
  10. ADIPEX-P [Concomitant]
     Active Substance: PHENTERMINE HYDROCHLORIDE
  11. BENAZEPRIL AND HYDROCHLOROTHIAZIDE [Concomitant]
     Active Substance: BENAZEPRIL HYDROCHLORIDE\HYDROCHLOROTHIAZIDE
     Dosage: UNK
     Dates: start: 20091222, end: 20100223
  12. BENICAR [Concomitant]
     Active Substance: OLMESARTAN MEDOXOMIL
  13. FEXOFENADINE [Concomitant]
     Active Substance: FEXOFENADINE\FEXOFENADINE HYDROCHLORIDE

REACTIONS (17)
  - Cerebral infarction [None]
  - Aphasia [None]
  - Generalised tonic-clonic seizure [None]
  - Pain [None]
  - Apraxia [None]
  - Activities of daily living impaired [None]
  - Hypertension [None]
  - Urinary tract infection [None]
  - Hemiparesis [None]
  - Injury [None]
  - Mental impairment [None]
  - Deep vein thrombosis [None]
  - Cerebral artery thrombosis [None]
  - Confusional state [None]
  - Seizure [None]
  - Vaginal haemorrhage [None]
  - Anxiety [None]

NARRATIVE: CASE EVENT DATE: 20100326
